FAERS Safety Report 8415412-9 (Version None)
Quarter: 2012Q2

REPORT INFORMATION
  Report Type: 
  Country: None (occurrence: None)
  Receive Date: 20120606
  Receipt Date: 20120531
  Transmission Date: 20120825
  Serious: Yes (Hospitalization)
  Sender: FDA-Public Use
  Company Number: PHEH2012US010537

PATIENT
  Sex: Female

DRUGS (2)
  1. STALEVO 100 [Suspect]
     Dosage: 100 MG, UNK
     Route: 048
  2. REQUIP [Suspect]

REACTIONS (8)
  - PAIN IN EXTREMITY [None]
  - PRURITUS [None]
  - INCORRECT DOSE ADMINISTERED [None]
  - DISEASE COMPLICATION [None]
  - NERVE COMPRESSION [None]
  - PARKINSON'S DISEASE [None]
  - TREMOR [None]
  - FEELING ABNORMAL [None]
